FAERS Safety Report 20827223 (Version 4)
Quarter: 2022Q3

REPORT INFORMATION
  Report Type: Report from Study
  Country: US (occurrence: US)
  Receive Date: 20220513
  Receipt Date: 20220720
  Transmission Date: 20221027
  Serious: Yes (Other)
  Sender: FDA-Public Use
  Company Number: US-NOVARTISTESTPH-NVSC2022US110090

PATIENT
  Age: 76 Year
  Sex: Female

DRUGS (1)
  1. LEQVIO [Suspect]
     Active Substance: INCLISIRAN SODIUM
     Indication: Product used for unknown indication
     Dosage: UNK
     Route: 058
     Dates: start: 20220331

REACTIONS (7)
  - Fall [Not Recovered/Not Resolved]
  - Urinary tract infection [Recovered/Resolved]
  - Arthralgia [Unknown]
  - Arthritis [Unknown]
  - Bone pain [Unknown]
  - Back pain [Recovering/Resolving]
  - Pain [Recovering/Resolving]

NARRATIVE: CASE EVENT DATE: 20220601
